FAERS Safety Report 6475142-X (Version None)
Quarter: 2009Q4

REPORT INFORMATION
  Report Type: 
  Country: None (occurrence: None)
  Receive Date: 20091204
  Receipt Date: 20090610
  Transmission Date: 20100525
  Serious: Yes (Hospitalization, Other)
  Sender: FDA-Public Use
  Company Number: US-ELI_LILLY_AND_COMPANY-US200903003666

PATIENT
  Sex: Female

DRUGS (8)
  1. GEMZAR [Suspect]
     Indication: LUNG CANCER METASTATIC
     Dates: start: 20090310
  2. ALIMTA [Suspect]
     Indication: LUNG CANCER METASTATIC
     Dosage: UNK, UNK
     Dates: start: 20090217, end: 20090217
  3. CISPLATIN [Concomitant]
     Indication: LUNG CANCER METASTATIC
  4. VITAMIN B-12 [Concomitant]
  5. FOLIC ACID [Concomitant]
  6. FENTANYL [Concomitant]
     Indication: HEADACHE
     Dosage: 75 MG, DAILY (1/D)
  7. OXYCODONE HCL [Concomitant]
     Indication: HEADACHE
     Dosage: 20 MG, EVERY 4 HRS
  8. ANTIBIOTICS [Concomitant]
     Indication: SINUSITIS
     Dosage: OTHER;LOW DOSE

REACTIONS (14)
  - ABDOMINAL PAIN [None]
  - ANXIETY [None]
  - BRONCHOSPASM [None]
  - CONSTIPATION [None]
  - CYSTITIS [None]
  - FEELING ABNORMAL [None]
  - FURUNCLE [None]
  - HEADACHE [None]
  - HYPERSENSITIVITY [None]
  - INFECTION [None]
  - MALAISE [None]
  - NAUSEA [None]
  - NERVOUS SYSTEM DISORDER [None]
  - VEIN PAIN [None]
